FAERS Safety Report 4666936-1 (Version None)
Quarter: 2005Q2

REPORT INFORMATION
  Report Type: 
  Country: None (occurrence: None)
  Receive Date: 20050518
  Receipt Date: 20040802
  Transmission Date: 20051028
  Serious: Yes (Other)
  Sender: FDA-Public Use
  Company Number: 2004226576US

PATIENT
  Age: 28 Year
  Sex: Female

DRUGS (2)
  1. DEPO-PROVERA [Suspect]
     Indication: CONTRACEPTION
     Dosage: EVERY 3 MONTHS, NEXT TO LAST INJ., INTRAMUSCULAR
     Route: 030
     Dates: start: 20040211, end: 20040211
  2. DEPO-PROVERA [Suspect]
     Dates: start: 20040428, end: 20040428

REACTIONS (1)
  - UNINTENDED PREGNANCY [None]
